FAERS Safety Report 11239756 (Version 1)
Quarter: 2015Q3

REPORT INFORMATION
  Report Type: Spontaneous
  Country: US (occurrence: None)
  Receive Date: 20150701
  Receipt Date: 20150701
  Transmission Date: 20151125
  Serious: No
  Sender: FDA-Public Use
  Company Number: None

PATIENT
  Age: 52 Year
  Sex: Female
  Weight: 88.45 kg

DRUGS (5)
  1. ZYRTEC [Concomitant]
     Active Substance: CETIRIZINE HYDROCHLORIDE
  2. CIMETIDINE [Concomitant]
     Active Substance: CIMETIDINE
  3. PANTAZOPROLE [Concomitant]
  4. LAMOTRIGINE. [Suspect]
     Active Substance: LAMOTRIGINE
     Indication: DEPRESSION
     Dosage: 1
     Route: 048
     Dates: start: 20150612, end: 20150630
  5. IBUPROFEN. [Concomitant]
     Active Substance: IBUPROFEN

REACTIONS (4)
  - Irritability [None]
  - Product substitution issue [None]
  - Feeling jittery [None]
  - Product quality issue [None]

NARRATIVE: CASE EVENT DATE: 20150630
